FAERS Safety Report 9129489 (Version 2)
Quarter: 2013Q1

REPORT INFORMATION
  Report Type: Spontaneous
  Country: JP (occurrence: JP)
  Receive Date: 20130228
  Receipt Date: 20130328
  Transmission Date: 20140127
  Serious: Yes (Other)
  Sender: FDA-Public Use
  Company Number: JP-GLAXOSMITHKLINE-B0869231A

PATIENT
  Age: 27 Year
  Sex: Female
  Weight: 76 kg

DRUGS (6)
  1. GABAPENTIN ENACARBIL [Suspect]
     Indication: RESTLESS LEGS SYNDROME
     Dosage: 300MG PER DAY
     Route: 048
     Dates: start: 20121030
  2. GABAPENTIN ENACARBIL [Suspect]
     Indication: RESTLESS LEGS SYNDROME
     Dosage: 600MG PER DAY
     Route: 048
     Dates: start: 20121127
  3. SEROQUEL [Suspect]
     Indication: SCHIZOPHRENIA
     Dosage: 25MG THREE TIMES PER DAY
     Route: 048
     Dates: start: 20121210, end: 20121215
  4. MYSLEE [Concomitant]
     Indication: SCHIZOPHRENIA
     Route: 065
     Dates: start: 20100605
  5. WYPAX [Concomitant]
     Indication: SCHIZOPHRENIA
     Route: 065
     Dates: start: 20120518, end: 20130107
  6. MIRTAZAPINE [Concomitant]
     Indication: SCHIZOPHRENIA
     Route: 065
     Dates: start: 20120813

REACTIONS (6)
  - Intentional drug misuse [Unknown]
  - Anger [Unknown]
  - Affect lability [Unknown]
  - Weight increased [Not Recovered/Not Resolved]
  - Muscle rigidity [Recovered/Resolved]
  - Dysarthria [Recovered/Resolved]
